FAERS Safety Report 10495688 (Version 2)
Quarter: 2014Q4

REPORT INFORMATION
  Report Type: Spontaneous
  Country: US (occurrence: US)
  Receive Date: 20141003
  Receipt Date: 20141003
  Transmission Date: 20150528
  Serious: Yes (Hospitalization)
  Sender: FDA-Public Use
  Company Number: US-BRISTOL-MYERS SQUIBB COMPANY-21337340

PATIENT
  Age: 66 Year
  Sex: Female
  Weight: 148.75 kg

DRUGS (4)
  1. NOVOLOG [Concomitant]
     Active Substance: INSULIN ASPART
  2. GLIPIZIDE. [Concomitant]
     Active Substance: GLIPIZIDE
  3. BYETTA [Suspect]
     Active Substance: EXENATIDE
     Indication: DIABETES MELLITUS
     Dosage: ONGOING
     Route: 058
     Dates: start: 20130501
  4. LEVEMIR [Concomitant]
     Active Substance: INSULIN DETEMIR

REACTIONS (4)
  - Drug dose omission [Unknown]
  - Chronic obstructive pulmonary disease [Unknown]
  - Product quality issue [Unknown]
  - Acute myocardial infarction [Unknown]
